FAERS Safety Report 16093784 (Version 1)
Quarter: 2019Q1

REPORT INFORMATION
  Report Type: Spontaneous
  Country: NO (occurrence: NO)
  Receive Date: 20190320
  Receipt Date: 20190320
  Transmission Date: 20190418
  Serious: Yes (Hospitalization)
  Sender: FDA-Public Use
  Company Number: NO-ACCORD-114216

PATIENT
  Age: 60 Year
  Sex: Female

DRUGS (4)
  1. CISPLATIN ACCORD [Suspect]
     Active Substance: CISPLATIN
     Indication: CHEMOTHERAPY
     Dosage: STRENGTH: 1, 150 MG
     Route: 042
     Dates: start: 20181031
  2. VINORELBIN EBEWE [Suspect]
     Active Substance: VINORELBINE\VINORELBINE TARTRATE
     Indication: CHEMOTHERAPY
     Dosage: STRENGTH: 10, 60 MG
     Route: 042
     Dates: start: 20181031, end: 20181107
  3. ALBYL-E [Concomitant]
     Active Substance: ASPIRIN\MAGNESIUM OXIDE
  4. SIMVASTATIN SANDOZ [Concomitant]
     Active Substance: SIMVASTATIN
     Dosage: STRENGTH: 40 MG MILLIGRAM

REACTIONS (3)
  - Pancytopenia [Recovering/Resolving]
  - Transfusion [None]
  - Monoparesis [Recovering/Resolving]

NARRATIVE: CASE EVENT DATE: 20181103
